FAERS Safety Report 14189961 (Version 2)
Quarter: 2017Q4

REPORT INFORMATION
  Report Type: Spontaneous
  Country: US (occurrence: US)
  Receive Date: 20171115
  Receipt Date: 20171205
  Transmission Date: 20180321
  Serious: No
  Sender: FDA-Public Use
  Company Number: US-PFIZER INC-2017470990

PATIENT
  Age: 80 Year
  Sex: Male
  Weight: 73 kg

DRUGS (8)
  1. HYDROCORTISONE. [Suspect]
     Active Substance: HYDROCORTISONE
     Dosage: UNK
  2. ELIQUIS [Suspect]
     Active Substance: APIXABAN
     Indication: CEREBROVASCULAR ACCIDENT PROPHYLAXIS
     Dosage: 5 MG, 2X/DAY
     Route: 048
  3. METOPROLOL TARTRATE. [Suspect]
     Active Substance: METOPROLOL TARTRATE
     Dosage: DOUBLE UP
  4. ELIQUIS [Concomitant]
     Active Substance: APIXABAN
     Indication: ATRIAL FIBRILLATION
     Dosage: 0.5 MG, 2X/DAY, IN THE MORNING AND NIGHT
     Route: 048
  5. LISINOPRIL. [Concomitant]
     Active Substance: LISINOPRIL
     Indication: BLOOD PRESSURE ABNORMAL
     Dosage: 20 MG, 2X/DAY, ONE IN THE MORNING AND ONE AT NIGHT
     Dates: start: 2012
  6. PREPARATION H NOS [Suspect]
     Active Substance: COCOA BUTTER\PETROLATUM\PHENYLEPHRINE HYDROCHLORIDE\PHENYLEPHRINE HYDROCHLORIDE OR MINERAL OIL
     Indication: PROCTALGIA
     Dosage: APPLIED WITH APPLICATOR IN RECTUM AND AROUND ANUS WITH FINGER
     Dates: start: 20171028, end: 20171029
  7. PREPARATION H NOS [Suspect]
     Active Substance: COCOA BUTTER\PETROLATUM\PHENYLEPHRINE HYDROCHLORIDE\PHENYLEPHRINE HYDROCHLORIDE OR MINERAL OIL
     Indication: ANAL HAEMORRHAGE
  8. METOPROLOL TARTRATE. [Suspect]
     Active Substance: METOPROLOL TARTRATE
     Indication: HYPERTENSION
     Dosage: 100 MG, 2X/DAY, (IN THE MORNING AND AT NIGHT)

REACTIONS (13)
  - Malaise [Unknown]
  - Headache [Recovering/Resolving]
  - Blood pressure increased [Recovering/Resolving]
  - Regurgitation [Recovered/Resolved]
  - Intentional product misuse [Unknown]
  - Gastrointestinal pain [Recovering/Resolving]
  - Nausea [Not Recovered/Not Resolved]
  - Perianal erythema [Recovered/Resolved]
  - Feeding disorder [Not Recovered/Not Resolved]
  - Proctalgia [Recovered/Resolved]
  - Drug effect incomplete [Unknown]
  - Abdominal pain upper [Recovering/Resolving]
  - Insomnia [Unknown]

NARRATIVE: CASE EVENT DATE: 20171028
